FAERS Safety Report 6589586-9 (Version None)
Quarter: 2010Q1

REPORT INFORMATION
  Report Type: 
  Country: None (occurrence: None)
  Receive Date: 20100212
  Receipt Date: 20100131
  Transmission Date: 20100710
  Serious: Yes (Hospitalization)
  Sender: FDA-Public Use
  Company Number: CIP10000255

PATIENT
  Age: 72 Year
  Sex: Male

DRUGS (1)
  1. ACTONEL [Suspect]
     Dosage: 150 MG, ORAL
     Route: 048
     Dates: start: 20091001

REACTIONS (6)
  - ABASIA [None]
  - DIARRHOEA [None]
  - DIZZINESS [None]
  - PULMONARY THROMBOSIS [None]
  - THROMBOSIS [None]
  - URINARY TRACT INFECTION [None]
